FAERS Safety Report 9357543 (Version 2)
Quarter: 2013Q3

REPORT INFORMATION
  Report Type: Report from Study
  Country: IT (occurrence: IT)
  Receive Date: 20130620
  Receipt Date: 20130903
  Transmission Date: 20140515
  Serious: Yes (Hospitalization)
  Sender: FDA-Public Use
  Company Number: IT-ROCHE-1237681

PATIENT
  Age: 68 Year
  Sex: Male
  Weight: 78 kg

DRUGS (9)
  1. VEMURAFENIB [Suspect]
     Indication: HAIRY CELL LEUKAEMIA
     Dosage: 2 DOSES, AT EVENT ONSET 4 CAPSULES/DAY
     Route: 048
     Dates: start: 20130603, end: 20130607
  2. VEMURAFENIB [Suspect]
     Dosage: 2 CAPS X2
     Route: 048
     Dates: start: 20130617, end: 20130701
  3. VEMURAFENIB [Suspect]
     Dosage: 2 CAPSX2
     Route: 048
     Dates: start: 20130702
  4. EPREX [Concomitant]
     Indication: ANAEMIA
     Route: 048
     Dates: start: 20130130
  5. COUMADIN [Concomitant]
     Indication: PULMONARY EMBOLISM
     Route: 065
     Dates: start: 201210
  6. RYTMONORM [Concomitant]
     Indication: EXTRASYSTOLES
     Route: 065
  7. EUTIROX [Concomitant]
     Indication: HYPOTHYROIDISM
     Route: 065
  8. OMNIC [Concomitant]
     Indication: BENIGN PROSTATIC HYPERPLASIA
     Route: 065
  9. ZEFFIX [Concomitant]
     Route: 048

REACTIONS (1)
  - Pancreatitis [Recovered/Resolved]
